FAERS Safety Report 11817320 (Version 2)
Quarter: 2017Q2

REPORT INFORMATION
  Report Type: Spontaneous
  Country: US (occurrence: US)
  Receive Date: 20151210
  Receipt Date: 20170406
  Transmission Date: 20170829
  Serious: No
  Sender: FDA-Public Use
  Company Number: US-JNJFOC-20150609761

PATIENT
  Sex: Male

DRUGS (5)
  1. RISPERDAL [Suspect]
     Active Substance: RISPERIDONE
     Indication: ANGER
     Dosage: 0.5 MG TO 1MG
     Route: 048
     Dates: start: 2012, end: 2014
  2. RISPERIDONE. [Suspect]
     Active Substance: RISPERIDONE
     Indication: ANGER
     Route: 048
  3. RISPERDAL [Suspect]
     Active Substance: RISPERIDONE
     Indication: ATTENTION DEFICIT/HYPERACTIVITY DISORDER
     Dosage: 0.5 MG TO 1MG
     Route: 048
     Dates: start: 2012, end: 2014
  4. RISPERDAL [Suspect]
     Active Substance: RISPERIDONE
     Indication: AGGRESSION
     Dosage: 0.5 MG TO 1MG
     Route: 048
     Dates: start: 2012, end: 2014
  5. RISPERIDONE. [Suspect]
     Active Substance: RISPERIDONE
     Indication: AGGRESSION
     Route: 048

REACTIONS (3)
  - Gynaecomastia [Unknown]
  - Overweight [Unknown]
  - Aggression [Unknown]

NARRATIVE: CASE EVENT DATE: 2013
